FAERS Safety Report 11419027 (Version 1)
Quarter: 2015Q3

REPORT INFORMATION
  Report Type: Spontaneous
  Country: US (occurrence: None)
  Receive Date: 20150824
  Receipt Date: 20150824
  Transmission Date: 20151125
  Serious: Yes (Other)
  Sender: FDA-Public Use
  Company Number: IPC201503-000159

PATIENT
  Age: 72 Year
  Sex: Female
  Weight: 104.3 kg

DRUGS (4)
  1. TRAMADOL (TRAMADOL) (TRAMADOL) [Concomitant]
     Active Substance: TRAMADOL
  2. HYDROCHLOROTHIAZIDE (HYDROCHLOROTHIAZIDE) (TABLETS) (HYDROCHLOROTHIAZIDE) [Suspect]
     Active Substance: HYDROCHLOROTHIAZIDE
     Indication: HYPERTENSION
     Dosage: 25 MG, OD
  3. ASPIRIN (ASPIRIN) (ASPIRIN) [Concomitant]
     Active Substance: ASPIRIN
  4. MOTRIN (IBUPROFEN) (IBUPROFEN) [Concomitant]

REACTIONS (6)
  - Palpitations [None]
  - Immune thrombocytopenic purpura [None]
  - Hypertension [None]
  - Dizziness [None]
  - Peripheral swelling [None]
  - Drug ineffective [None]

NARRATIVE: CASE EVENT DATE: 201411
